FAERS Safety Report 8898156 (Version 6)
Quarter: 2013Q1

REPORT INFORMATION
  Report Type: Spontaneous
  Country: US (occurrence: US)
  Receive Date: 20121109
  Receipt Date: 20130208
  Transmission Date: 20140127
  Serious: Yes (Hospitalization)
  Sender: FDA-Public Use
  Company Number: US-BIOGENIDEC-2012BI049961

PATIENT
  Age: 47 None
  Sex: Female
  Weight: 75 kg

DRUGS (17)
  1. AVONEX [Suspect]
     Indication: MULTIPLE SCLEROSIS
     Route: 030
  2. AVONEX [Suspect]
     Indication: MULTIPLE SCLEROSIS
     Route: 030
     Dates: start: 20121028
  3. AMITIZA [Concomitant]
  4. PERCOCET [Concomitant]
  5. FLEXERIL [Concomitant]
  6. TESSALON PERLES [Concomitant]
  7. SEPTRA DS [Concomitant]
  8. ENSURE [Concomitant]
  9. CYTOTEC [Concomitant]
  10. CLONAZEPAM [Concomitant]
  11. NICODERM CQ [Concomitant]
  12. LEVOTHYROXINE [Concomitant]
  13. MORPHINE [Concomitant]
  14. CREON [Concomitant]
  15. OMEPRAZOLE [Concomitant]
  16. DOXEPIN [Concomitant]
  17. PROMETHAZINE [Concomitant]

REACTIONS (10)
  - Pancreatitis acute [Recovered/Resolved]
  - Pancreatitis [Recovered/Resolved]
  - Pancreatitis chronic [Recovered/Resolved]
  - Amylase decreased [Recovered/Resolved]
  - Lipase decreased [Unknown]
  - Blood glucose increased [Not Recovered/Not Resolved]
  - Bone pain [Not Recovered/Not Resolved]
  - White blood cell count decreased [Unknown]
  - Night sweats [Unknown]
  - Influenza like illness [Not Recovered/Not Resolved]
